FAERS Safety Report 18831566 (Version 2)
Quarter: 2021Q1

REPORT INFORMATION
  Report Type: Report from Study
  Country: GB (occurrence: GB)
  Receive Date: 20210203
  Receipt Date: 20210212
  Transmission Date: 20210419
  Serious: Yes (Hospitalization)
  Sender: FDA-Public Use
  Company Number: GB-AMGEN-GBRNI2021016560

PATIENT
  Age: 20 Year
  Sex: Male

DRUGS (1)
  1. AIMOVIG [Suspect]
     Active Substance: ERENUMAB-AOOE
     Indication: MIGRAINE
     Dosage: 70 MILLIGRAM, QMO
     Route: 065

REACTIONS (6)
  - Dizziness [Unknown]
  - Feeling hot [Unknown]
  - Malaise [Unknown]
  - Tachycardia [Unknown]
  - Injection related reaction [Unknown]
  - Dyspnoea [Unknown]
